FAERS Safety Report 6133434-8 (Version None)
Quarter: 2009Q1

REPORT INFORMATION
  Report Type: 
  Country: None (occurrence: None)
  Receive Date: 20090326
  Receipt Date: 20090326
  Transmission Date: 20090719
  Serious: Yes (Life-Threatening, Hospitalization)
  Sender: FDA-Public Use
  Company Number: PHHO2001FR04843

PATIENT
  Sex: Female
  Weight: 87 kg

DRUGS (4)
  1. CGS 20267 T30748+ [Suspect]
     Indication: BREAST CANCER
     Dosage: 2.5 MG, QD
     Route: 048
     Dates: start: 20001006, end: 20010518
  2. LEVOTHYROXINE SODIUM [Concomitant]
  3. HYPERIUM [Concomitant]
     Indication: HYPERTENSION
  4. CELECTOL [Concomitant]

REACTIONS (5)
  - CARDIAC FAILURE [None]
  - DEEP VEIN THROMBOSIS [None]
  - DYSPNOEA [None]
  - PULMONARY EMBOLISM [None]
  - RENAL FAILURE ACUTE [None]
